FAERS Safety Report 7728249-0 (Version None)
Quarter: 2011Q3

REPORT INFORMATION
  Report Type: 
  Country: None (occurrence: None)
  Receive Date: 20110905
  Receipt Date: 20110826
  Transmission Date: 20111222
  Serious: Yes (Other)
  Sender: FDA-Public Use
  Company Number: PHHY2011JP76003

PATIENT
  Age: 9 Year
  Sex: Male

DRUGS (2)
  1. TEGRETOL [Suspect]
     Indication: CONVULSION
     Dosage: UNK UKN, UNK
     Route: 048
     Dates: start: 20101019, end: 20101121
  2. PREDNISOLONE [Concomitant]
     Dosage: 1 MG/KG, UNK

REACTIONS (9)
  - LYMPHOCYTE MORPHOLOGY ABNORMAL [None]
  - ALOPECIA [None]
  - DRUG RASH WITH EOSINOPHILIA AND SYSTEMIC SYMPTOMS [None]
  - HUMAN HERPES VIRUS 6 SEROLOGY POSITIVE [None]
  - LIVER DISORDER [None]
  - EOSINOPHIL COUNT INCREASED [None]
  - ERYTHEMA [None]
  - RESPIRATORY DISORDER [None]
  - LYMPHADENOPATHY [None]
